FAERS Safety Report 5403644-3 (Version None)
Quarter: 2007Q3

REPORT INFORMATION
  Report Type: 
  Country: None (occurrence: None)
  Receive Date: 20070802
  Receipt Date: 20070724
  Transmission Date: 20080115
  Serious: Yes (Other)
  Sender: FDA-Public Use
  Company Number: PHFR2007GB02255

PATIENT
  Age: 56 Year
  Sex: Female
  Weight: 76 kg

DRUGS (3)
  1. PANTOPRAZOLE SODIUM [Concomitant]
     Route: 065
     Dates: start: 20040607
  2. TAMOXIFEN CITRATE [Concomitant]
     Route: 065
     Dates: start: 20070608
  3. LETROZOLE [Suspect]
     Indication: BREAST CANCER FEMALE
     Dosage: 1 DF, QD
     Route: 048
     Dates: start: 20061214, end: 20070608

REACTIONS (5)
  - ARTHRALGIA [None]
  - DIZZINESS [None]
  - MUSCULOSKELETAL STIFFNESS [None]
  - PHARYNGOLARYNGEAL PAIN [None]
  - SYNCOPE [None]
